FAERS Safety Report 17293172 (Version 1)
Quarter: 2020Q1

REPORT INFORMATION
  Report Type: Spontaneous
  Country: MX (occurrence: MX)
  Receive Date: 20200121
  Receipt Date: 20200121
  Transmission Date: 20200409
  Serious: Yes (Other)
  Sender: FDA-Public Use
  Company Number: NVSC2020MX011416

PATIENT
  Age: 74 Year
  Sex: Male

DRUGS (1)
  1. PREDNISONE. [Suspect]
     Active Substance: PREDNISONE
     Indication: DERMATITIS EXFOLIATIVE GENERALISED
     Dosage: 1 MG/KG, QD
     Route: 065

REACTIONS (3)
  - Acute kidney injury [Unknown]
  - Syphilis [Unknown]
  - Skin necrosis [Unknown]
